FAERS Safety Report 19971693 (Version 1)
Quarter: 2021Q4

REPORT INFORMATION
  Report Type: Spontaneous
  Country: US (occurrence: US)
  Receive Date: 20211019
  Receipt Date: 20211019
  Transmission Date: 20220303
  Serious: No
  Sender: FDA-Public Use
  Company Number: US-HORIZON-2021HZN00340

PATIENT
  Sex: Male

DRUGS (1)
  1. PROCYSBI [Suspect]
     Active Substance: CYSTEAMINE BITARTRATE
     Indication: Cystinosis
     Dosage: 675MG BY MOUTH EVERY 12 HOURS
     Route: 048
     Dates: start: 20130917

REACTIONS (1)
  - Expired product administered [Unknown]
